FAERS Safety Report 6120931-4 (Version None)
Quarter: 2009Q1

REPORT INFORMATION
  Report Type: 
  Country: None (occurrence: None)
  Receive Date: 20090317
  Receipt Date: 20090313
  Transmission Date: 20090719
  Serious: Yes (Death, Hospitalization)
  Sender: FDA-Public Use
  Company Number: CN-ASTRAZENECA-2009AP01889

PATIENT
  Age: 79 Year
  Sex: Male

DRUGS (2)
  1. IRESSA [Suspect]
     Indication: NON-SMALL CELL LUNG CANCER
     Route: 048
  2. IRESSA [Suspect]
     Indication: LUNG ADENOCARCINOMA
     Route: 048

REACTIONS (5)
  - ASTHENIA [None]
  - DECREASED APPETITE [None]
  - HEPATOTOXICITY [None]
  - INTERSTITIAL LUNG DISEASE [None]
  - RASH [None]
